FAERS Safety Report 6872427-X (Version None)
Quarter: 2010Q3

REPORT INFORMATION
  Report Type: 
  Country: None (occurrence: None)
  Receive Date: 20100723
  Receipt Date: 20081003
  Transmission Date: 20110219
  Serious: Yes (Other)
  Sender: FDA-Public Use
  Company Number: US-PFIZER INC-2008083440

PATIENT
  Sex: Female
  Weight: 61.7 kg

DRUGS (3)
  1. CHANTIX [Suspect]
     Indication: SMOKING CESSATION THERAPY
     Dates: start: 20080101
  2. ANTIBIOTICS [Concomitant]
  3. SYNTHROID [Concomitant]

REACTIONS (10)
  - ABDOMINAL PAIN UPPER [None]
  - ASTHMA [None]
  - FLATULENCE [None]
  - GASTROINTESTINAL PAIN [None]
  - GASTROOESOPHAGEAL REFLUX DISEASE [None]
  - INTENTIONAL DRUG MISUSE [None]
  - MULTIPLE ALLERGIES [None]
  - PULMONARY CONGESTION [None]
  - RECTAL HAEMORRHAGE [None]
  - WEIGHT INCREASED [None]
